FAERS Safety Report 5071376-X (Version None)
Quarter: 2006Q3

REPORT INFORMATION
  Report Type: 
  Country: None (occurrence: None)
  Receive Date: 20060804
  Receipt Date: 20060801
  Transmission Date: 20061208
  Serious: Yes (Death)
  Sender: FDA-Public Use
  Company Number: PHRM2006FR02218

PATIENT
  Age: 55 Year
  Sex: Male

DRUGS (8)
  1. TAREG [Suspect]
     Dosage: 80 MG, QD
     Route: 048
  2. STAGID [Suspect]
     Dosage: UNK, UNK
     Route: 048
  3. TRANDATE [Suspect]
     Route: 048
  4. ZOCOR [Suspect]
     Dosage: 40 MG, QD
     Route: 048
  5. ESCITALOPRAM OXALATE [Suspect]
     Dosage: 10 MG, QD
     Route: 048
     Dates: start: 20060529
  6. PLAVIX [Suspect]
     Dosage: 75 MG, QD
     Route: 047
  7. ASPIRIN [Concomitant]
     Route: 048
  8. NOVONORM [Concomitant]
     Route: 048

REACTIONS (5)
  - COUGH [None]
  - FATIGUE [None]
  - ISCHAEMIA [None]
  - PRODUCTIVE COUGH [None]
  - SUDDEN DEATH [None]
